FAERS Safety Report 7988986-X (Version None)
Quarter: 2011Q4

REPORT INFORMATION
  Report Type: 
  Country: None (occurrence: None)
  Receive Date: 20111219
  Receipt Date: 20111206
  Transmission Date: 20120403
  Serious: Yes (Hospitalization, Other)
  Sender: FDA-Public Use
  Company Number: PHHY2011CA86249

PATIENT
  Sex: Male

DRUGS (4)
  1. WELLBUTRIN XL [Concomitant]
     Dosage: 450 MG, AM
  2. COLACE [Concomitant]
     Dosage: 200 MG, QHS
  3. CLOZARIL [Suspect]
     Indication: SCHIZOPHRENIA, PARANOID TYPE
     Route: 048
     Dates: start: 20100111
  4. ATROPINE [Concomitant]
     Dosage: 1-2 DROPS SL HS

REACTIONS (2)
  - APPENDICITIS [None]
  - INFECTIOUS PERITONITIS [None]
